FAERS Safety Report 5443993-6 (Version None)
Quarter: 2007Q3

REPORT INFORMATION
  Report Type: 
  Country: None (occurrence: None)
  Receive Date: 20070831
  Receipt Date: 20070817
  Transmission Date: 20080115
  Serious: Yes (Other)
  Sender: FDA-Public Use
  Company Number: 2007US-09259

PATIENT
  Age: 59 Year
  Sex: Male

DRUGS (1)
  1. ISOTRETINOIN [Suspect]
     Indication: PROSTATE CANCER
     Dosage: 10MG; 40MG

REACTIONS (1)
  - MYOCARDIAL INFARCTION [None]
